FAERS Safety Report 5087962-7 (Version None)
Quarter: 2006Q3

REPORT INFORMATION
  Report Type: 
  Country: None (occurrence: None)
  Receive Date: 20060727
  Receipt Date: 20060419
  Transmission Date: 20061208
  Serious: Yes (Other)
  Sender: FDA-Public Use
  Company Number: 2006058108

PATIENT
  Age: 66 Year
  Sex: Female
  Weight: 86.1834 kg

DRUGS (8)
  1. LYRICA [Suspect]
     Indication: NEUROPATHY
     Dosage: 300 MG (150 MG,2 IN 1 D)
     Dates: start: 20060411
  2. CYMBALTA [Concomitant]
  3. METHADONE HCL [Concomitant]
  4. LASIX [Concomitant]
  5. KLOR-CON [Concomitant]
  6. MAGNESIUM (MAGNESIUM) [Concomitant]
  7. CENTRUM (MINERALS NOS, VITAMINS NOS) [Concomitant]
  8. VALIUM [Concomitant]

REACTIONS (4)
  - ILL-DEFINED DISORDER [None]
  - INTENTIONAL DRUG MISUSE [None]
  - NEUROPATHY [None]
  - SOMNOLENCE [None]
